FAERS Safety Report 5796463-X (Version None)
Quarter: 2008Q3

REPORT INFORMATION
  Report Type: 
  Country: None (occurrence: None)
  Receive Date: 20080701
  Receipt Date: 20080630
  Transmission Date: 20090109
  Serious: Yes (Death)
  Sender: FDA-Public Use
  Company Number: PHEH2007US13245

PATIENT
  Sex: Male

DRUGS (4)
  1. EXJADE [Suspect]
     Indication: ENDOCRINE NEOPLASM
     Dosage: 1500 MG, QD
     Route: 048
     Dates: start: 20070419
  2. EXJADE [Suspect]
     Indication: MYELOFIBROSIS
  3. GLEEVEC [Suspect]
     Indication: ENDOCRINE NEOPLASM
     Dosage: 400 MG, QD
     Dates: start: 20070615
  4. REVLIMID [Concomitant]

REACTIONS (2)
  - MYELOFIBROSIS [None]
  - NEOPLASM MALIGNANT [None]
